FAERS Safety Report 10925889 (Version 2)
Quarter: 2015Q3

REPORT INFORMATION
  Report Type: Report from Study
  Country: US (occurrence: US)
  Receive Date: 20150318
  Receipt Date: 20150924
  Transmission Date: 20151125
  Serious: Yes (Hospitalization, Other)
  Sender: FDA-Public Use
  Company Number: US-BAYER-2013-121182

PATIENT
  Age: 72 Year
  Sex: Female

DRUGS (11)
  1. NEXAVAR [Suspect]
     Active Substance: SORAFENIB
     Indication: RENAL CANCER
     Dosage: 200 MG, 1 TABLET 5 DAYS A WEEK
     Route: 048
     Dates: start: 20140606, end: 20150914
  2. NEXAVAR [Suspect]
     Active Substance: SORAFENIB
     Indication: RENAL CANCER
     Dosage: 200MG
     Route: 048
     Dates: start: 20140115, end: 20140526
  3. IRON [Concomitant]
     Active Substance: IRON
  4. NEXAVAR [Suspect]
     Active Substance: SORAFENIB
     Indication: RENAL CANCER
     Dosage: 200 MG, QD
     Route: 048
     Dates: start: 20131031, end: 20131223
  5. NEXAVAR [Suspect]
     Active Substance: SORAFENIB
     Indication: RENAL CANCER
     Dosage: 200 MG, QD
     Route: 048
  6. CALCITRIOL. [Concomitant]
     Active Substance: CALCITRIOL
  7. VITAMIN B COMPLEX [CYANOCOBALAMIN] [Concomitant]
  8. NEXAVAR [Suspect]
     Active Substance: SORAFENIB
     Indication: RENAL CANCER
     Dosage: 200 MG, BID
     Route: 048
     Dates: start: 20130928
  9. NEXAVAR [Suspect]
     Active Substance: SORAFENIB
     Indication: RENAL CANCER
     Dosage: 400 MG DAILY DOSE
     Route: 048
     Dates: start: 20131005
  10. TYLENOL [Concomitant]
     Active Substance: ACETAMINOPHEN
  11. CALCIUM ACETATE. [Concomitant]
     Active Substance: CALCIUM ACETATE

REACTIONS (23)
  - Pain in extremity [Recovered/Resolved]
  - Herpes zoster [Recovered/Resolved]
  - Pelvic fracture [Recovered/Resolved]
  - Blood urine present [Recovered/Resolved]
  - Pain of skin [None]
  - Diarrhoea [Not Recovered/Not Resolved]
  - Decreased appetite [Recovering/Resolving]
  - Rash erythematous [Recovered/Resolved]
  - Vomiting [Recovered/Resolved]
  - Alopecia [None]
  - Urinary bladder haemorrhage [Recovered/Resolved]
  - Dry skin [None]
  - Pain [None]
  - Skin exfoliation [None]
  - Drug ineffective [None]
  - Rash [Recovered/Resolved]
  - Arthropathy [Not Recovered/Not Resolved]
  - Pain in extremity [Recovering/Resolving]
  - Pruritus [None]
  - Weight decreased [Recovering/Resolving]
  - Urinary retention [Recovered/Resolved]
  - Pruritus [Recovering/Resolving]
  - Fatigue [Not Recovered/Not Resolved]

NARRATIVE: CASE EVENT DATE: 20130929
